FAERS Safety Report 13576380 (Version 5)
Quarter: 2019Q1

REPORT INFORMATION
  Report Type: Spontaneous
  Country: US (occurrence: US)
  Receive Date: 20170524
  Receipt Date: 20190305
  Transmission Date: 20190417
  Serious: Yes (Death, Hospitalization, Other)
  Sender: FDA-Public Use
  Company Number: US-SA-2017SA094227

PATIENT
  Age: 11 Year
  Sex: Female
  Weight: 42.1 kg

DRUGS (5)
  1. PHENOBARBITAL. [Concomitant]
     Active Substance: PHENOBARBITAL
     Indication: SEIZURE
     Dosage: 20 DF,BID
     Route: 065
     Dates: start: 2016
  2. LUMIZYME [Suspect]
     Active Substance: ALGLUCOSIDASE ALFA
     Dosage: 1200 MG, QOW
     Route: 041
     Dates: start: 20160921
  3. ONFI [Concomitant]
     Active Substance: CLOBAZAM
     Indication: SEIZURE
     Dosage: 2.5 DF,QD
     Route: 065
     Dates: start: 2016
  4. KEPPRA [Concomitant]
     Active Substance: LEVETIRACETAM
     Indication: SEIZURE
     Dosage: 100 DF,QD
     Route: 065
  5. LUMIZYME [Suspect]
     Active Substance: ALGLUCOSIDASE ALFA
     Indication: GLYCOGEN STORAGE DISEASE TYPE II
     Dosage: 30 MG/KG,QOW
     Route: 041
     Dates: start: 20160525

REACTIONS (7)
  - Seizure [Recovered/Resolved]
  - Cardiac disorder [Unknown]
  - Death [Fatal]
  - Vascular device infection [Recovered/Resolved]
  - Intentional product use issue [Unknown]
  - Tachycardia [Recovered/Resolved]
  - Device issue [Unknown]

NARRATIVE: CASE EVENT DATE: 20170421
